FAERS Safety Report 15276711 (Version 1)
Quarter: 2018Q3

REPORT INFORMATION
  Report Type: Spontaneous
  Country: US (occurrence: US)
  Receive Date: 20180814
  Receipt Date: 20180814
  Transmission Date: 20181010
  Serious: Yes (Other)
  Sender: FDA-Public Use
  Company Number: US-SA-2018SA002357

PATIENT
  Age: 50 Year
  Sex: Female
  Weight: 89.8 kg

DRUGS (18)
  1. TAXOTERE [Suspect]
     Active Substance: DOCETAXEL
     Dosage: 200 MG,Q3W
     Route: 042
     Dates: start: 20110721, end: 20110721
  2. NEOSAR [Concomitant]
     Active Substance: CYCLOPHOSPHAMIDE
     Route: 065
  3. LANSOPRAZOLE. [Concomitant]
     Active Substance: LANSOPRAZOLE
     Route: 065
  4. IPRATROPIUM BROMIDE. [Concomitant]
     Active Substance: IPRATROPIUM BROMIDE
     Dosage: UNK
     Route: 065
     Dates: start: 201001
  5. SALONPAS [MENTHOL;METHYL SALICYLATE] [Concomitant]
     Dosage: UNK
     Dates: start: 201101
  6. LISINOPRIL. [Concomitant]
     Active Substance: LISINOPRIL
     Dosage: UNK
     Route: 065
     Dates: start: 20100611
  7. PROMETHAZINE [Concomitant]
     Active Substance: PROMETHAZINE\PROMETHAZINE HYDROCHLORIDE
     Route: 065
  8. FLUTICASONE PROPIONATE. [Concomitant]
     Active Substance: FLUTICASONE PROPIONATE
     Dosage: UNK
     Route: 065
     Dates: start: 200501
  9. HYDROCODONE [Concomitant]
     Active Substance: HYDROCODONE
     Route: 065
  10. HYDROCHLOROTHIAZIDE. [Concomitant]
     Active Substance: HYDROCHLOROTHIAZIDE
     Dosage: UNK
     Route: 065
     Dates: start: 20080122
  11. TAXOTERE [Suspect]
     Active Substance: DOCETAXEL
     Dosage: 200 MG,Q3W
     Route: 042
     Dates: start: 20110921, end: 20110921
  12. METOPROLOL. [Concomitant]
     Active Substance: METOPROLOL
     Dosage: UNK
     Route: 065
     Dates: start: 200301
  13. FLUOXETINE [Concomitant]
     Active Substance: FLUOXETINE HYDROCHLORIDE
     Route: 065
  14. MELOXICAM. [Concomitant]
     Active Substance: MELOXICAM
     Dosage: UNK
     Route: 065
     Dates: start: 20090101
  15. FERROUS SULFATE. [Concomitant]
     Active Substance: FERROUS SULFATE
     Dosage: UNK
     Route: 065
     Dates: start: 200901
  16. DOXORUBICIN [Concomitant]
     Active Substance: DOXORUBICIN
     Route: 065
  17. WARFARIN [Concomitant]
     Active Substance: WARFARIN
     Route: 065
  18. LIDOCAIN HYDROCHLORIDE [Concomitant]
     Dosage: UNK
     Route: 065
     Dates: start: 201101

REACTIONS (6)
  - Emotional distress [Unknown]
  - Psychological trauma [Unknown]
  - Alopecia [Recovering/Resolving]
  - Anxiety [Unknown]
  - Pain [Unknown]
  - Impaired quality of life [Unknown]

NARRATIVE: CASE EVENT DATE: 201203
